FAERS Safety Report 7310814-6 (Version None)
Quarter: 2011Q1

REPORT INFORMATION
  Report Type: 
  Country: None (occurrence: None)
  Receive Date: 20110224
  Receipt Date: 20110221
  Transmission Date: 20110831
  Serious: Yes (Death)
  Sender: FDA-Public Use
  Company Number: PHHY2011JP14482

PATIENT
  Sex: Male
  Weight: 50 kg

DRUGS (4)
  1. DIOVAN [Suspect]
     Indication: HYPERTENSION
     Dosage: 80 MG, ONCE DAILY
     Route: 048
     Dates: start: 20090605, end: 20101215
  2. TAMSULOSIN HCL [Concomitant]
     Dosage: 0.1 MG, UNK
     Route: 048
     Dates: start: 20090605, end: 20091215
  3. NORVASC [Concomitant]
     Indication: HYPERTENSION
     Dosage: 2.5 MG, UNK
     Route: 048
     Dates: start: 20090605, end: 20091215
  4. MEZOLMIN [Concomitant]
     Indication: HYPERTENSION
     Dosage: 25 MG, UNK
     Route: 048
     Dates: start: 20090806, end: 20091215

REACTIONS (1)
  - ACUTE MYOCARDIAL INFARCTION [None]
